FAERS Safety Report 15436092 (Version 1)
Quarter: 2018Q3

REPORT INFORMATION
  Report Type: Spontaneous
  Country: KR (occurrence: KR)
  Receive Date: 20180927
  Receipt Date: 20180927
  Transmission Date: 20181010
  Serious: Yes (Hospitalization, Other)
  Sender: FDA-Public Use
  Company Number: KR-PURDUE PHARMA-GBR-2018-0059657

PATIENT
  Age: 86 Year
  Sex: Male

DRUGS (1)
  1. OXYNORM [Suspect]
     Active Substance: OXYCODONE HYDROCHLORIDE
     Indication: BACK PAIN
     Dosage: 20 MG, DAILY
     Route: 042
     Dates: start: 20180904, end: 20180904

REACTIONS (6)
  - Hypersomnia [Recovered/Resolved]
  - Medication error [Recovered/Resolved]
  - Delirium [Not Recovered/Not Resolved]
  - Electrolyte depletion [Unknown]
  - Blood pressure increased [Not Recovered/Not Resolved]
  - Decreased appetite [Unknown]

NARRATIVE: CASE EVENT DATE: 201809
